FAERS Safety Report 17435317 (Version 1)
Quarter: 2020Q1

REPORT INFORMATION
  Report Type: Spontaneous
  Country: ES (occurrence: ES)
  Receive Date: 20200219
  Receipt Date: 20200219
  Transmission Date: 20200409
  Serious: Yes (Other)
  Sender: FDA-Public Use
  Company Number: ES-PFIZER INC-2020035385

PATIENT
  Age: 14 Year
  Sex: Male

DRUGS (2)
  1. METHOTREXATE SODIUM. [Suspect]
     Active Substance: METHOTREXATE SODIUM
     Indication: NON-HODGKIN^S LYMPHOMA
     Dosage: UNK (HIGH-DOSE)
  2. GLUTAMINE [Suspect]
     Active Substance: GLUTAMINE
     Indication: NON-HODGKIN^S LYMPHOMA
     Dosage: 20 G, 1X/DAY

REACTIONS (1)
  - Nephropathy toxic [Unknown]
